FAERS Safety Report 4595132-1 (Version None)
Quarter: 2005Q1

REPORT INFORMATION
  Report Type: 
  Country: None (occurrence: None)
  Receive Date: 20050223
  Receipt Date: 20050208
  Transmission Date: 20050727
  Serious: Yes (Hospitalization)
  Sender: FDA-Public Use
  Company Number: 2005-00226

PATIENT
  Age: 72 Year
  Sex: Male

DRUGS (7)
  1. INTEGRILIN [Suspect]
     Indication: ACUTE CORONARY SYNDROME
     Dosage: SEE IMAGE
     Route: 040
  2. METOPROLOL TARTRATE [Concomitant]
  3. HEPARIN [Concomitant]
  4. FELODIPINE [Concomitant]
  5. NITROGLYCERIN [Concomitant]
  6. ASPIRIN [Concomitant]
  7. VITAMIN E/001105/TOCOPHEROL) [Concomitant]

REACTIONS (3)
  - CARDIAC FAILURE [None]
  - HAEMATOMA [None]
  - HEPARIN-INDUCED THROMBOCYTOPENIA [None]
